FAERS Safety Report 8807517 (Version 7)
Quarter: 2013Q2

REPORT INFORMATION
  Report Type: Spontaneous
  Country: JP (occurrence: JP)
  Receive Date: 20120925
  Receipt Date: 20130408
  Transmission Date: 20140414
  Serious: Yes (Death, Life-Threatening, Other)
  Sender: FDA-Public Use
  Company Number: JP-PFIZER INC-2012232746

PATIENT
  Age: 66 Year
  Sex: Female
  Weight: 53 kg

DRUGS (8)
  1. INLYTA [Suspect]
     Indication: RENAL CANCER METASTATIC
     Dosage: 10 MG, 1X/DAY
     Route: 048
     Dates: start: 20120911, end: 20120916
  2. SUTENT [Suspect]
     Indication: RENAL CANCER METASTATIC
     Dosage: 25 MG, 1X/DAY
     Route: 048
     Dates: start: 20120717, end: 20120801
  3. AFINITOR [Suspect]
     Indication: RENAL CANCER METASTATIC
     Dosage: 5 MG, UNK
     Route: 048
     Dates: start: 20120820, end: 20120902
  4. AFINITOR [Suspect]
     Dosage: 5 MG, 1X/DAY
     Route: 048
     Dates: start: 20120903, end: 20120910
  5. OMEPRAL [Concomitant]
     Dosage: 20 MG, 1X/DAY
     Route: 048
  6. PRIMPERAN [Concomitant]
     Dosage: 5 MG, 3X/DAY
     Route: 048
  7. DOPS OD [Concomitant]
     Indication: PROCEDURAL HYPOTENSION
     Dosage: 100 MG, 1X/DAY
     Route: 048
  8. RISUMIC [Concomitant]
     Indication: PROCEDURAL HYPOTENSION
     Dosage: 10 MG, 1X/DAY
     Route: 048

REACTIONS (4)
  - Interstitial lung disease [Not Recovered/Not Resolved]
  - Disease progression [Fatal]
  - Renal cancer metastatic [Fatal]
  - Cardiac failure [Unknown]
